FAERS Safety Report 25599948 (Version 1)
Quarter: 2025Q3

REPORT INFORMATION
  Report Type: Spontaneous
  Country: CA (occurrence: CA)
  Receive Date: 20250724
  Receipt Date: 20250724
  Transmission Date: 20251020
  Serious: Yes (Other)
  Sender: ORGANON
  Company Number: CA-ORGANON-O2507CAN001913

PATIENT
  Age: 70 Year
  Sex: Female
  Weight: 43.084 kg

DRUGS (3)
  1. FOSAMAX [Suspect]
     Active Substance: ALENDRONATE SODIUM
     Indication: Osteoporosis
     Dosage: 70 MILLIGRAM, 1 EVERY 1 WEEKS
     Route: 002
  2. PROLIA [Suspect]
     Active Substance: DENOSUMAB
     Indication: Osteoporosis
     Dosage: 60 MILLIGRAM PER MILLILITRE, 1 EVERY 6 MONTHS (PRE-FILLED SYRINGE PRESERVATIVE-FREE SOLUTION SUBCUTA
     Route: 058
  3. RISEDRONATE SODIUM [Suspect]
     Active Substance: RISEDRONATE SODIUM
     Route: 065

REACTIONS (5)
  - Cataract [Recovered/Resolved with Sequelae]
  - Corneal disorder [Recovered/Resolved with Sequelae]
  - Deafness unilateral [Recovered/Resolved with Sequelae]
  - Osteonecrosis of jaw [Recovered/Resolved with Sequelae]
  - Sinus disorder [Recovered/Resolved with Sequelae]
